FAERS Safety Report 9280529 (Version 1)
Quarter: 2013Q2

REPORT INFORMATION
  Report Type: Spontaneous
  Country: US (occurrence: US)
  Receive Date: 20130509
  Receipt Date: 20130509
  Transmission Date: 20140414
  Serious: Yes (Other)
  Sender: FDA-Public Use
  Company Number: US-SANOFI-AVENTIS-2013SA046545

PATIENT
  Age: 64 Year
  Sex: Female

DRUGS (2)
  1. LANTUS SOLOSTAR [Suspect]
     Dosage: DOSE:45 UNIT(S)
     Route: 058
  2. SOLOSTAR [Suspect]

REACTIONS (5)
  - Cataract [Unknown]
  - Visual impairment [Unknown]
  - Injury [Unknown]
  - Haemorrhage [Unknown]
  - Eye disorder [Unknown]
